FAERS Safety Report 6917761-X (Version None)
Quarter: 2010Q3

REPORT INFORMATION
  Report Type: 
  Country: None (occurrence: None)
  Receive Date: 20100810
  Receipt Date: 20100729
  Transmission Date: 20110219
  Serious: Yes (Other)
  Sender: FDA-Public Use
  Company Number: US-PFIZER INC-2010079187

PATIENT
  Sex: Female
  Weight: 61 kg

DRUGS (4)
  1. CHANTIX [Suspect]
     Indication: NICOTINE DEPENDENCE
     Dosage: 0.5 MG, 1X/DAY
     Route: 048
     Dates: start: 20100302, end: 20100101
  2. CHANTIX [Interacting]
     Dosage: UNK
     Route: 048
     Dates: start: 20100101, end: 20100601
  3. CHANTIX [Interacting]
     Dosage: UNK
     Route: 048
     Dates: start: 20100601, end: 20100622
  4. XANAX [Interacting]
     Indication: ANXIETY
     Dosage: UNK

REACTIONS (4)
  - CONFUSIONAL STATE [None]
  - DEPRESSION [None]
  - DRUG INTERACTION [None]
  - IRRITABILITY [None]
